FAERS Safety Report 8243693-3 (Version None)
Quarter: 2012Q1

REPORT INFORMATION
  Report Type: 
  Country: None (occurrence: None)
  Receive Date: 20120329
  Receipt Date: 20120327
  Transmission Date: 20120608
  Serious: Yes (Other)
  Sender: FDA-Public Use
  Company Number: US-VERTEX PHARMACEUTICALS INC.-AE-2012-003731

PATIENT
  Sex: Male
  Weight: 90.8 kg

DRUGS (5)
  1. RIBAVIRIN [Concomitant]
     Indication: HEPATITIS C
     Route: 048
     Dates: start: 20120309
  2. PEGASYS [Concomitant]
     Indication: HEPATITIS C
     Route: 058
     Dates: start: 20120309
  3. SYNTHROID [Concomitant]
  4. OMEPRAZOLE [Concomitant]
  5. INCIVEK [Suspect]
     Indication: HEPATITIS C
     Route: 048
     Dates: start: 20120309

REACTIONS (4)
  - SEPSIS [None]
  - EPISTAXIS [None]
  - PROCTALGIA [None]
  - RECTAL HAEMORRHAGE [None]
